FAERS Safety Report 20962484 (Version 2)
Quarter: 2022Q2

REPORT INFORMATION
  Report Type: Spontaneous
  Country: US (occurrence: US)
  Receive Date: 20220615
  Receipt Date: 20220621
  Transmission Date: 20220720
  Serious: Yes (Other)
  Sender: FDA-Public Use
  Company Number: US-drreddys-LIT/USA/22/0151155

PATIENT
  Age: 7 Month
  Sex: Male

DRUGS (13)
  1. MELPHALAN HYDROCHLORIDE [Suspect]
     Active Substance: MELPHALAN HYDROCHLORIDE
     Indication: Chemotherapy
     Dosage: ON DAYS -5 TO -2
     Route: 042
  2. THYMOCYTE IMMUNE GLOBULIN NOS [Suspect]
     Active Substance: THYMOCYTE IMMUNE GLOBULIN NOS
     Indication: Chemotherapy
     Dosage: OVER DAYS -9 TO -7
     Route: 042
  3. BUSULFAN [Suspect]
     Active Substance: BUSULFAN
     Indication: Chemotherapy
     Dosage: FOR 12 DOSES ON DAYS -8 TO -6,
     Route: 042
  4. FLUDARABINE [Suspect]
     Active Substance: FLUDARABINE PHOSPHATE
     Indication: Chemotherapy
     Dosage: ON DAYS -5 TO -2
     Route: 042
  5. LEVOFLOXACIN [Concomitant]
     Active Substance: LEVOFLOXACIN
     Indication: Antibiotic prophylaxis
  6. TACROLIMUS [Concomitant]
     Active Substance: TACROLIMUS
     Indication: Prophylaxis against graft versus host disease
  7. PENTAMIDINE [Concomitant]
     Active Substance: PENTAMIDINE
     Indication: Antifungal prophylaxis
     Route: 042
  8. CYCLOPHOSPHAMIDE [Concomitant]
     Active Substance: CYCLOPHOSPHAMIDE
     Indication: Prophylaxis against graft versus host disease
     Dosage: ON DAYS PLUS 3 AND PLUS 4
     Route: 042
  9. MYCOPHENOLATE MOFETIL [Concomitant]
     Active Substance: MYCOPHENOLATE MOFETIL
     Indication: Prophylaxis against graft versus host disease
  10. VORICONAZOLE [Concomitant]
     Active Substance: VORICONAZOLE
     Indication: Antifungal prophylaxis
  11. ACYCLOVIR [Concomitant]
     Active Substance: ACYCLOVIR
     Indication: Antiviral prophylaxis
  12. ELTROMBOPAG [Concomitant]
     Active Substance: ELTROMBOPAG
     Indication: Refractoriness to platelet transfusion
  13. Granulocyte-colony stimulating factor (G-CSF) [Concomitant]
     Indication: Product used for unknown indication
     Dosage: ON DAY PLUS 5

REACTIONS (2)
  - Mucosal inflammation [Unknown]
  - Stenotrophomonas infection [Unknown]
